FAERS Safety Report 9194231 (Version 1)
Quarter: 2013Q1

REPORT INFORMATION
  Report Type: Spontaneous
  Country: US (occurrence: US)
  Receive Date: 20130327
  Receipt Date: 20130327
  Transmission Date: 20140127
  Serious: Yes (Other)
  Sender: FDA-Public Use
  Company Number: US-GILEAD-2013-0072403

PATIENT
  Sex: Male

DRUGS (1)
  1. LETAIRIS [Suspect]
     Indication: PRODUCT USED FOR UNKNOWN INDICATION
     Dosage: 5 MG, QD
     Dates: start: 20120829

REACTIONS (6)
  - Asbestosis [Unknown]
  - Malaise [Unknown]
  - Erythema [Unknown]
  - Hypoaesthesia [Unknown]
  - Pain in extremity [Unknown]
  - Local swelling [Unknown]
